FAERS Safety Report 5684233-2 (Version None)
Quarter: 2008Q1

REPORT INFORMATION
  Report Type: 
  Country: None (occurrence: None)
  Receive Date: 20080327
  Receipt Date: 20080327
  Transmission Date: 20080703
  Serious: Yes (Hospitalization)
  Sender: FDA-Public Use
  Company Number: None

PATIENT
  Sex: Female

DRUGS (2)
  1. GEMCITABINE [Suspect]
     Indication: GALLBLADDER CANCER
     Dosage: IV
     Route: 042
     Dates: start: 20080204, end: 20080211
  2. GEMCITABINE [Suspect]
     Indication: METASTASES TO LIVER
     Dosage: IV
     Route: 042
     Dates: start: 20080204, end: 20080211

REACTIONS (4)
  - CARDIAC FAILURE CONGESTIVE [None]
  - INTERSTITIAL LUNG DISEASE [None]
  - PULMONARY TOXICITY [None]
  - RESPIRATORY FAILURE [None]
